FAERS Safety Report 10722364 (Version 2)
Quarter: 2015Q1

REPORT INFORMATION
  Report Type: Report from Study
  Country: KR (occurrence: KR)
  Receive Date: 20150119
  Receipt Date: 20150124
  Transmission Date: 20150721
  Serious: Yes (Hospitalization, Disabling, Other)
  Sender: FDA-Public Use
  Company Number: KR-BRISTOL-MYERS SQUIBB COMPANY-BMS-2015-001145

PATIENT
  Age: 57 Year
  Sex: Male

DRUGS (14)
  1. MYCOBAL [Concomitant]
     Indication: NEUROPATHY PERIPHERAL
  2. NORVASC [Concomitant]
     Active Substance: AMLODIPINE BESYLATE
     Indication: ISCHAEMIA
  3. NEBILET [Concomitant]
     Active Substance: NEBIVOLOL
     Indication: ISCHAEMIA
  4. LIPITOR [Concomitant]
     Active Substance: ATORVASTATIN CALCIUM
  5. ASPIRIN                            /00002701/ [Concomitant]
     Active Substance: ASPIRIN
     Indication: ISCHAEMIA
  6. ELANTAN [Concomitant]
     Active Substance: ISOSORBIDE MONONITRATE
     Indication: ISCHAEMIA
  7. ROVELITO [Concomitant]
  8. LYRICA [Concomitant]
     Active Substance: PREGABALIN
     Indication: NEUROPATHY PERIPHERAL
  9. PLAVIX [Concomitant]
     Active Substance: CLOPIDOGREL BISULFATE
     Indication: ISCHAEMIA
  10. GALVUS [Concomitant]
     Active Substance: VILDAGLIPTIN
  11. AMARYL [Concomitant]
     Active Substance: GLIMEPIRIDE
  12. GLUPA [Concomitant]
     Active Substance: METFORMIN HYDROCHLORIDE
  13. BLINDED DAPAGLIFLOZIN [Suspect]
     Active Substance: DAPAGLIFLOZIN
     Indication: TYPE 2 DIABETES MELLITUS
     Dosage: UNK
     Route: 065
     Dates: start: 20140925
  14. PLACEBO [Suspect]
     Active Substance: UNSPECIFIED INGREDIENT
     Indication: TYPE 2 DIABETES MELLITUS
     Dosage: UNK
     Route: 065
     Dates: start: 20140925

REACTIONS (1)
  - Benign prostatic hyperplasia [Recovering/Resolving]

NARRATIVE: CASE EVENT DATE: 20150104
